FAERS Safety Report 6092092-1 (Version None)
Quarter: 2009Q1

REPORT INFORMATION
  Report Type: 
  Country: None (occurrence: None)
  Receive Date: 20090225
  Receipt Date: 20090215
  Transmission Date: 20090719
  Serious: Yes (Other)
  Sender: FDA-Public Use
  Company Number: EG-PFIZER INC-2009164593

PATIENT

DRUGS (4)
  1. ZITHROMAX [Suspect]
     Indication: RESPIRATORY TRACT INFECTION
     Dosage: 500 MG, 1X/DAY
     Route: 048
     Dates: start: 20081201, end: 20081201
  2. ZITHROMAX [Suspect]
     Dosage: 500 MG, 1X/DAY
     Dates: start: 20090101, end: 20090101
  3. NORVASC [Concomitant]
     Dosage: UNK
     Route: 048
  4. LIPITOR [Concomitant]
     Dosage: UNK
     Route: 048

REACTIONS (3)
  - CONJUNCTIVAL OEDEMA [None]
  - EYE OEDEMA [None]
  - HYPERSENSITIVITY [None]
